FAERS Safety Report 24164107 (Version 1)
Quarter: 2024Q3

REPORT INFORMATION
  Report Type: Spontaneous
  Country: GB (occurrence: GB)
  Receive Date: 20240801
  Receipt Date: 20240801
  Transmission Date: 20241016
  Serious: Yes (Hospitalization)
  Sender: TEVA
  Company Number: None

PATIENT
  Age: 83 Year
  Sex: Female

DRUGS (10)
  1. IRBESARTAN [Suspect]
     Active Substance: IRBESARTAN
     Dosage: 75 MG TABLETS EVERY NIGHT
     Route: 065
  2. CALCIUM\CHOLECALCIFEROL [Concomitant]
     Active Substance: CALCIUM\CHOLECALCIFEROL
     Dosage: CHEWABLE TABLETS ONE TO BE TAKEN TWICE A DAY
  3. FOLIC ACID [Concomitant]
     Active Substance: FOLIC ACID
     Dosage: 5 MG TABLETS ONE TO BE TAKEN EACH MORNING
  4. FERROUS FUMARATE [Concomitant]
     Active Substance: FERROUS FUMARATE
     Dosage: 210 MG TABLETS ONE TO BE TAKEN EACH DAY AT LUNCH, FERROUS FUMURATE
  5. ATORVASTATIN [Concomitant]
     Active Substance: ATORVASTATIN
     Dosage: 20 MG TABLETS TAKE ONE DAILY
  6. PAROXETINE [Suspect]
     Active Substance: PAROXETINE
     Dosage: 20 MG TABLETS 40 MG ONCE DAILY
     Route: 065
  7. CLOPIDOGREL [Concomitant]
     Active Substance: CLOPIDOGREL BISULFATE
     Dosage: 75 MG TABLETS ONE TO BE TAKEN EACH DAY
  8. SODIUM BICARBONATE [Concomitant]
     Active Substance: SODIUM BICARBONATE
     Dosage: 500 MG CAPSULES TWO TO BE TAKEN THREE TIMES A DAY
  9. DONEPEZIL [Concomitant]
     Active Substance: DONEPEZIL\DONEPEZIL HYDROCHLORIDE
     Dosage: 10 MG TABLETS ONE TO BE TAKEN AT NIGHT
  10. MIRABEGRON [Concomitant]
     Active Substance: MIRABEGRON
     Dosage: 50 MG MODIFIED - RELEASE TABLETS ONE TO BE TAKEN EACH DAY

REACTIONS (1)
  - Fall [Recovered/Resolved]
